FAERS Safety Report 25837286 (Version 1)
Quarter: 2025Q3

REPORT INFORMATION
  Report Type: Spontaneous
  Country: MX (occurrence: MX)
  Receive Date: 20250923
  Receipt Date: 20250923
  Transmission Date: 20251021
  Serious: Yes (Other)
  Sender: UNITED THERAPEUTICS
  Company Number: MX-UNITED THERAPEUTICS-UNT-2025-027897

PATIENT
  Age: 27 Year
  Weight: 38 kg

DRUGS (3)
  1. REMODULIN [Suspect]
     Active Substance: TREPROSTINIL
     Indication: Pulmonary arterial hypertension
  2. REMODULIN [Suspect]
     Active Substance: TREPROSTINIL
  3. REMODULIN [Suspect]
     Active Substance: TREPROSTINIL

REACTIONS (7)
  - Pneumonia [Not Recovered/Not Resolved]
  - Catheter site pain [Recovering/Resolving]
  - Hypotension [Not Recovered/Not Resolved]
  - Palpitations [Not Recovered/Not Resolved]
  - Catheter site induration [Recovering/Resolving]
  - Catheter site erythema [Recovering/Resolving]
  - Catheter site swelling [Recovering/Resolving]
